FAERS Safety Report 4401059-8 (Version None)
Quarter: 2004Q3

REPORT INFORMATION
  Report Type: 
  Country: None (occurrence: None)
  Receive Date: 20040907
  Receipt Date: 20031013
  Transmission Date: 20050211
  Serious: No
  Sender: FDA-Public Use
  Company Number: US-BRISTOL-MYERS SQUIBB COMPANY-12409611

PATIENT
  Age: 80 Year
  Sex: Female
  Weight: 66 kg

DRUGS (11)
  1. COUMADIN [Suspect]
     Indication: ATRIAL FIBRILLATION
     Dosage: COUMADIN + WARFARIN: 5MG QD MONDAY + FRIDAY; 3MG QD ON TUESDAY, WEDNESDAY, + THURSDAY.
     Route: 048
  2. NEURONTIN [Concomitant]
  3. METOPROLOL [Concomitant]
  4. PROTONIX [Concomitant]
  5. ALLOPURINOL [Concomitant]
  6. FUROSEMIDE [Concomitant]
  7. BENTYL [Concomitant]
  8. ZOCOR [Concomitant]
  9. CLINDAMYCIN HCL [Concomitant]
  10. LEVAQUIN [Concomitant]
  11. CLARINEX [Concomitant]

REACTIONS (1)
  - ERYTHEMA [None]
